FAERS Safety Report 4667025-2 (Version None)
Quarter: 2005Q2

REPORT INFORMATION
  Report Type: 
  Country: None (occurrence: None)
  Receive Date: 20050520
  Receipt Date: 20040329
  Transmission Date: 20051028
  Serious: Yes (Other)
  Sender: FDA-Public Use
  Company Number: PHEH2004US03591

PATIENT
  Age: 52 Year
  Sex: Female
  Weight: 68 kg

DRUGS (8)
  1. ZOMETA [Suspect]
     Indication: BREAST CANCER METASTATIC
     Dosage: 4 MG, QMO
     Dates: start: 20030101, end: 20040101
  2. CYTOXAN [Concomitant]
     Indication: BREAST CANCER
     Dates: start: 20020101, end: 20030101
  3. FEMARA [Concomitant]
     Indication: BREAST CANCER
     Dates: start: 20020101, end: 20030101
  4. DARVOCET-N 100 [Concomitant]
  5. ALLEGRA [Concomitant]
  6. WELLBUTRIN [Concomitant]
  7. CELEXA [Concomitant]
  8. AREDIA [Suspect]
     Indication: BREAST CANCER METASTATIC
     Dosage: 90 MG, QMO
     Dates: start: 20020101, end: 20030101

REACTIONS (4)
  - ASEPTIC NECROSIS BONE [None]
  - IMPAIRED HEALING [None]
  - JAW DISORDER [None]
  - WOUND DRAINAGE [None]
